FAERS Safety Report 22624085 (Version 1)
Quarter: 2023Q2

REPORT INFORMATION
  Report Type: Report from Study
  Country: IT (occurrence: IT)
  Receive Date: 20230621
  Receipt Date: 20230621
  Transmission Date: 20230721
  Serious: Yes (Other)
  Sender: FDA-Public Use
  Company Number: None

PATIENT
  Age: 72 Year
  Sex: Male

DRUGS (4)
  1. CARBOPLATIN [Suspect]
     Active Substance: CARBOPLATIN
     Indication: Lung adenocarcinoma
     Dosage: 350 MG / CYCLE (5TH CYCLE OF THERAPY)
     Dates: start: 20230413, end: 20230413
  2. PEMETREXED [Suspect]
     Active Substance: PEMETREXED
     Indication: Lung adenocarcinoma
     Dosage: 800 MG / CYCLE (5TH CYCLE OF THERAPY)
     Dates: start: 20230413, end: 20230413
  3. PEMBROLIZUMAB [Suspect]
     Active Substance: PEMBROLIZUMAB
     Indication: Lung adenocarcinoma
     Dosage: 200 MG / CYCLE (5TH CYCLE OF THERAPY)
     Dates: start: 20230413, end: 20230413
  4. XARELTO [Concomitant]
     Active Substance: RIVAROXABAN
     Indication: Acute coronary syndrome
     Dosage: 20 MG DAILY

REACTIONS (2)
  - Neutropenia [Recovering/Resolving]
  - Phlebitis [Unknown]

NARRATIVE: CASE EVENT DATE: 20230502
